FAERS Safety Report 5171620-4 (Version None)
Quarter: 2006Q4

REPORT INFORMATION
  Report Type: 
  Country: None (occurrence: None)
  Receive Date: 20061213
  Receipt Date: 20061113
  Transmission Date: 20070319
  Serious: Yes (Life-Threatening, Hospitalization)
  Sender: FDA-Public Use
  Company Number: GB-ROCHE-471570

PATIENT
  Age: 76 Year
  Sex: Female
  Weight: 60 kg

DRUGS (8)
  1. BONIVA [Suspect]
     Indication: OSTEOPOROSIS
     Route: 048
     Dates: start: 20060710
  2. ASPIRIN [Concomitant]
     Route: 048
  3. RAMIPRIL [Concomitant]
     Indication: HYPERTENSION
     Route: 048
  4. LACIDIPINE [Concomitant]
     Route: 048
  5. NICORANDIL [Concomitant]
     Route: 048
  6. OMEPRAZOLE [Concomitant]
     Route: 048
  7. ATORVASTATIN CALCIUM [Concomitant]
     Route: 048
  8. CALCICHEW [Concomitant]

REACTIONS (5)
  - GASTRIC HAEMORRHAGE [None]
  - HIATUS HERNIA [None]
  - HYPONATRAEMIA [None]
  - NAUSEA [None]
  - OESOPHAGITIS [None]
